FAERS Safety Report 9098068 (Version 3)
Quarter: 2015Q1

REPORT INFORMATION
  Report Type: Report from Study
  Country: CA (occurrence: CA)
  Receive Date: 20130212
  Receipt Date: 20150303
  Transmission Date: 20150721
  Serious: Yes (Other)
  Sender: FDA-Public Use
  Company Number: CA-ROCHE-1189500

PATIENT
  Age: 44 Year
  Sex: Female
  Weight: 54.4 kg

DRUGS (13)
  1. MAGIC MOUTH RINSE (KAOPECTATE, VISCOUS LIDOCAINE, BENADRYL) [Concomitant]
  2. METHYLPREDNISOLONE. [Concomitant]
     Active Substance: METHYLPREDNISOLONE
     Indication: PREMEDICATION
     Route: 042
     Dates: start: 20120502
  3. RITUXAN [Suspect]
     Active Substance: RITUXIMAB
     Indication: PEMPHIGUS
     Route: 042
     Dates: start: 20110502
  4. PREDNISONE. [Concomitant]
     Active Substance: PREDNISONE
     Route: 065
  5. RITUXAN [Suspect]
     Active Substance: RITUXIMAB
     Route: 042
     Dates: start: 20130402
  6. ELTROXIN [Concomitant]
     Active Substance: LEVOTHYROXINE
  7. PARIET [Concomitant]
     Active Substance: RABEPRAZOLE SODIUM
  8. FUCIDIN [Concomitant]
     Active Substance: FUSIDIC ACID
  9. CELLCEPT [Suspect]
     Active Substance: MYCOPHENOLATE MOFETIL\MYCOPHENOLATE MOFETIL HYDROCHLORIDE
     Indication: PRODUCT USED FOR UNKNOWN INDICATION
     Route: 065
     Dates: start: 2011
  10. DIPHENHYDRAMINE HCL [Concomitant]
     Active Substance: DIPHENHYDRAMINE HYDROCHLORIDE
     Indication: PREMEDICATION
     Route: 048
     Dates: start: 20120502
  11. ACETAMINOPHEN. [Concomitant]
     Active Substance: ACETAMINOPHEN
     Indication: PREMEDICATION
     Route: 048
     Dates: start: 20120502
  12. BENADRYL [Concomitant]
     Active Substance: DIPHENHYDRAMINE HYDROCHLORIDE
  13. ACTONEL [Concomitant]
     Active Substance: RISEDRONATE SODIUM

REACTIONS (6)
  - Rash [Not Recovered/Not Resolved]
  - Anxiety [Unknown]
  - Pemphigus [Not Recovered/Not Resolved]
  - Hepatic lesion [Unknown]
  - Dysphagia [Not Recovered/Not Resolved]
  - Sinusitis [Recovered/Resolved]

NARRATIVE: CASE EVENT DATE: 201206
